FAERS Safety Report 5572910-3 (Version None)
Quarter: 2007Q4

REPORT INFORMATION
  Report Type: 
  Country: None (occurrence: None)
  Receive Date: 20071224
  Receipt Date: 20071213
  Transmission Date: 20080405
  Serious: Yes (Other)
  Sender: FDA-Public Use
  Company Number: JP-NOVOPROD-270396

PATIENT
  Weight: 1.798 kg

DRUGS (4)
  1. NOVOLIN N [Suspect]
     Indication: DIABETES MELLITUS
     Route: 064
  2. NOVOLIN R [Suspect]
     Indication: DIABETES MELLITUS
     Route: 064
  3. IRON [Concomitant]
  4. EPOGEN [Concomitant]

REACTIONS (2)
  - HYPERBILIRUBINAEMIA NEONATAL [None]
  - SMALL FOR DATES BABY [None]
